FAERS Safety Report 4874912-9 (Version None)
Quarter: 2006Q1

REPORT INFORMATION
  Report Type: 
  Country: None (occurrence: None)
  Receive Date: 20060105
  Receipt Date: 20051228
  Transmission Date: 20060701
  Serious: Yes (Hospitalization)
  Sender: FDA-Public Use
  Company Number: 2005RR-01404

PATIENT
  Age: 80 Year
  Sex: Male

DRUGS (4)
  1. METFORMIN HCL [Suspect]
     Indication: DIABETES MELLITUS NON-INSULIN-DEPENDENT
  2. ENALAPRIL MALEATE [Suspect]
  3. SERTRALINE [Concomitant]
  4. GLIPIZIDE [Concomitant]

REACTIONS (7)
  - ASTHENIA [None]
  - COUGH [None]
  - LACTIC ACIDOSIS [None]
  - METABOLIC ACIDOSIS [None]
  - PNEUMONIA [None]
  - PYREXIA [None]
  - TACHYPNOEA [None]
